FAERS Safety Report 24365557 (Version 1)
Quarter: 2024Q3

REPORT INFORMATION
  Report Type: Spontaneous
  Country: GB (occurrence: GB)
  Receive Date: 20240926
  Receipt Date: 20240926
  Transmission Date: 20241016
  Serious: Yes (Death)
  Sender: MYLAN
  Company Number: GB-MYLANLABS-2024M1058229

PATIENT
  Sex: Male

DRUGS (1)
  1. CLOZARIL [Suspect]
     Active Substance: CLOZAPINE
     Indication: Schizophrenia
     Dosage: UNK
     Route: 048
     Dates: start: 20111107

REACTIONS (2)
  - Death [Fatal]
  - Differential white blood cell count abnormal [Unknown]
